FAERS Safety Report 20806876 (Version 1)
Quarter: 2022Q2

REPORT INFORMATION
  Report Type: Spontaneous
  Country: US (occurrence: US)
  Receive Date: 20220510
  Receipt Date: 20220510
  Transmission Date: 20220720
  Serious: No
  Sender: FDA-Public Use
  Company Number: US-DSJP-DSU-2022-115688AA

PATIENT
  Age: 79 Year
  Sex: Female

DRUGS (1)
  1. EVOXAC [Suspect]
     Active Substance: CEVIMELINE HYDROCHLORIDE
     Indication: Sjogren^s syndrome
     Dosage: 1 CAPSULE, TID
     Route: 065
     Dates: start: 2022

REACTIONS (1)
  - Epigastric discomfort [Unknown]

NARRATIVE: CASE EVENT DATE: 20220101
